FAERS Safety Report 5781928-7 (Version None)
Quarter: 2008Q2

REPORT INFORMATION
  Report Type: 
  Country: None (occurrence: None)
  Receive Date: 20080623
  Receipt Date: 20080619
  Transmission Date: 20081010
  Serious: Yes (Life-Threatening)
  Sender: FDA-Public Use
  Company Number: B0524973A

PATIENT
  Age: 3 Year
  Sex: Female

DRUGS (6)
  1. ZOVIRAX [Suspect]
     Indication: DRUG USE FOR UNKNOWN INDICATION
     Dosage: 5MGK THREE TIMES PER DAY
     Route: 042
  2. VALTREX [Suspect]
     Indication: DRUG USE FOR UNKNOWN INDICATION
     Dosage: 25MGK THREE TIMES PER DAY
     Route: 048
  3. ANHIBA [Concomitant]
     Route: 054
  4. ROCEPHIN [Concomitant]
     Route: 065
  5. FLUMARIN [Concomitant]
     Route: 065
  6. NEO-MINOPHAGEN-C [Concomitant]
     Route: 065

REACTIONS (1)
  - STEVENS-JOHNSON SYNDROME [None]
